FAERS Safety Report 21434901 (Version 1)
Quarter: 2022Q4

REPORT INFORMATION
  Report Type: Spontaneous
  Country: CN (occurrence: CN)
  Receive Date: 20221010
  Receipt Date: 20221010
  Transmission Date: 20230112
  Serious: Yes (Hospitalization)
  Sender: FDA-Public Use
  Company Number: CN-ELI_LILLY_AND_COMPANY-CN202209013235

PATIENT
  Age: 52 Year
  Sex: Female
  Weight: 52.5 kg

DRUGS (4)
  1. HUMULIN 70/30 [Suspect]
     Active Substance: INSULIN HUMAN
     Indication: Diabetes mellitus
     Dosage: UNK, BID
     Route: 058
     Dates: start: 2005
  2. HUMULIN 70/30 [Suspect]
     Active Substance: INSULIN HUMAN
     Dosage: UNK, BID
     Route: 058
  3. HUMULIN 70/30 [Suspect]
     Active Substance: INSULIN HUMAN
     Dosage: UNK, BID
     Route: 058
  4. GLUCOBAY [Concomitant]
     Active Substance: ACARBOSE

REACTIONS (5)
  - Syncope [Unknown]
  - Syncope [Unknown]
  - Hypoglycaemia [Unknown]
  - Blood glucose increased [Unknown]
  - Intraocular pressure increased [Unknown]

NARRATIVE: CASE EVENT DATE: 20220615
